FAERS Safety Report 7417616-0 (Version None)
Quarter: 2011Q2

REPORT INFORMATION
  Report Type: 
  Country: None (occurrence: None)
  Receive Date: 20110415
  Receipt Date: 20110404
  Transmission Date: 20111010
  Serious: Yes (Other)
  Sender: FDA-Public Use
  Company Number: PHHY2010JP88087

PATIENT

DRUGS (3)
  1. RASILEZ [Suspect]
     Dosage: 150 MG DAILY
     Route: 048
     Dates: start: 20101130
  2. ZYLORIC [Suspect]
     Indication: HYPERURICAEMIA
     Dosage: 200 MG, UNK
     Route: 048
     Dates: start: 20101020, end: 20101122
  3. RASILEZ [Suspect]
     Indication: HYPERTENSION
     Dosage: 150 MG DAILY
     Route: 048
     Dates: start: 20101116, end: 20101122

REACTIONS (3)
  - BLOOD PRESSURE INCREASED [None]
  - HYPOKALAEMIA [None]
  - PLATELET COUNT DECREASED [None]
